FAERS Safety Report 19670427 (Version 1)
Quarter: 2021Q3

REPORT INFORMATION
  Report Type: Report from Study
  Country: PR (occurrence: PR)
  Receive Date: 20210806
  Receipt Date: 20210806
  Transmission Date: 20211014
  Serious: Yes (Other)
  Sender: FDA-Public Use
  Company Number: PR-SAOL THERAPEUTICS-2021SAO00167

PATIENT
  Age: 65 Year
  Sex: Female

DRUGS (3)
  1. CLONIDINE. [Suspect]
     Active Substance: CLONIDINE
     Dosage: 360.13677 ?G, 1X/DAY
     Route: 037
  2. HYDROMORPHONE [Suspect]
     Active Substance: HYDROMORPHONE
     Dosage: 18.00684 MG, 1X/DAY
     Route: 037
  3. LIORESAL [Suspect]
     Active Substance: BACLOFEN
     Dosage: UNK, \DAY
     Route: 037

REACTIONS (1)
  - Implant site extravasation [Recovered/Resolved]

NARRATIVE: CASE EVENT DATE: 20200831
